FAERS Safety Report 6978452-2 (Version None)
Quarter: 2010Q3

REPORT INFORMATION
  Report Type: 
  Country: None (occurrence: None)
  Receive Date: 20100913
  Receipt Date: 20100902
  Transmission Date: 20110219
  Serious: Yes (Hospitalization)
  Sender: FDA-Public Use
  Company Number: US-AMGEN-QUU435631

PATIENT
  Sex: Male
  Weight: 140 kg

DRUGS (6)
  1. NPLATE [Suspect]
     Indication: IDIOPATHIC THROMBOCYTOPENIC PURPURA
     Dates: start: 20090101
  2. IMMU-G [Concomitant]
     Route: 042
     Dates: start: 20100824, end: 20100826
  3. METFORMIN [Concomitant]
  4. LISINOPRIL [Concomitant]
  5. RITUXIMAB [Concomitant]
     Dates: start: 20080301
  6. DANOCRINE [Concomitant]

REACTIONS (1)
  - PLATELET COUNT DECREASED [None]
